FAERS Safety Report 11788157 (Version 1)
Quarter: 2015Q4

REPORT INFORMATION
  Report Type: Report from Study
  Country: CN (occurrence: CN)
  Receive Date: 20151201
  Receipt Date: 20151201
  Transmission Date: 20160305
  Serious: Yes (Other)
  Sender: FDA-Public Use
  Company Number: CN-ROCHE-1529634

PATIENT
  Age: 35 Year
  Sex: Male
  Weight: 61 kg

DRUGS (1)
  1. AVASTIN [Suspect]
     Active Substance: BEVACIZUMAB
     Indication: COLON CANCER
     Route: 041
     Dates: start: 20140729

REACTIONS (7)
  - Bone marrow failure [Unknown]
  - Platelet count decreased [Unknown]
  - Proteinuria [Unknown]
  - Renal injury [Unknown]
  - Drug ineffective [Unknown]
  - Blood disorder [Unknown]
  - Liver injury [Unknown]

NARRATIVE: CASE EVENT DATE: 20151014
